FAERS Safety Report 5402693-9 (Version None)
Quarter: 2007Q3

REPORT INFORMATION
  Report Type: 
  Country: None (occurrence: None)
  Receive Date: 20070801
  Receipt Date: 20070725
  Transmission Date: 20080115
  Serious: Yes (Hospitalization)
  Sender: FDA-Public Use
  Company Number: B0477617A

PATIENT
  Age: 95 Year
  Sex: Female

DRUGS (10)
  1. AUGMENTIN '125' [Suspect]
     Dosage: 1G TWICE PER DAY
     Route: 048
     Dates: start: 20070529, end: 20070612
  2. OFLOCET [Suspect]
     Dosage: 200MG SINGLE DOSE
     Route: 048
     Dates: start: 20070614, end: 20070614
  3. TRIFLUCAN [Suspect]
     Dosage: 50MG PER DAY
     Route: 048
     Dates: start: 20070601, end: 20070615
  4. PARACETAMOL [Suspect]
     Indication: ACCIDENTAL POISONING
     Dosage: 1G FOUR TIMES PER DAY
     Route: 048
     Dates: start: 20070523, end: 20070621
  5. LASIX [Suspect]
     Dosage: 40MG PER DAY
     Route: 048
     Dates: end: 20070626
  6. TARDYFERON [Suspect]
     Route: 048
     Dates: start: 20070612
  7. ECONAZOLE NITRATE [Suspect]
     Dosage: 1APP PER DAY
     Route: 061
     Dates: end: 20070626
  8. DACRYOSERUM [Concomitant]
     Route: 065
  9. LORAZEPAM [Concomitant]
     Route: 065
  10. PYOSTACINE [Concomitant]
     Dosage: 3G PER DAY
     Route: 065
     Dates: start: 20070525, end: 20070529

REACTIONS (6)
  - ALANINE AMINOTRANSFERASE INCREASED [None]
  - ASPARTATE AMINOTRANSFERASE INCREASED [None]
  - BLOOD ALKALINE PHOSPHATASE INCREASED [None]
  - DRUG TOXICITY [None]
  - GAMMA-GLUTAMYLTRANSFERASE INCREASED [None]
  - HEPATITIS CHOLESTATIC [None]
